FAERS Safety Report 6203606-2 (Version None)
Quarter: 2009Q2

REPORT INFORMATION
  Report Type: 
  Country: None (occurrence: None)
  Receive Date: 20090522
  Receipt Date: 20090522
  Transmission Date: 20091009
  Serious: No
  Sender: FDA-Public Use
  Company Number: None

PATIENT
  Sex: Male

DRUGS (1)
  1. SINGULAIR [Suspect]
     Indication: MULTIPLE ALLERGIES
     Dosage: TAKE 1 TABLET DAILY IN PM PO
     Route: 048
     Dates: start: 20090518, end: 20090519

REACTIONS (4)
  - ANXIETY [None]
  - ASTHENIA [None]
  - DEPRESSION [None]
  - INSOMNIA [None]
